FAERS Safety Report 5037167-0 (Version None)
Quarter: 2006Q2

REPORT INFORMATION
  Report Type: 
  Country: None (occurrence: None)
  Receive Date: 20060601
  Receipt Date: 20060206
  Transmission Date: 20061013
  Serious: No
  Sender: FDA-Public Use
  Company Number: 2006PV008304

PATIENT
  Age: 51 Year
  Sex: Male
  Weight: 102.9665 kg

DRUGS (4)
  1. BYETTA [Suspect]
     Indication: DIABETES MELLITUS NON-INSULIN-DEPENDENT
     Dosage: 5 MCG;BID;SC
     Route: 058
     Dates: start: 20060128
  2. METFORMIN [Concomitant]
  3. ACTOS [Concomitant]
  4. GYLBURIDE XR [Concomitant]

REACTIONS (9)
  - ABDOMINAL DISTENSION [None]
  - BLOOD GLUCOSE INCREASED [None]
  - FATIGUE [None]
  - FOOD AVERSION [None]
  - HEART RATE INCREASED [None]
  - HUNGER [None]
  - NAUSEA [None]
  - SOMNOLENCE [None]
  - WEIGHT DECREASED [None]
